FAERS Safety Report 5912033-4 (Version None)
Quarter: 2008Q4

REPORT INFORMATION
  Report Type: 
  Country: None (occurrence: None)
  Receive Date: 20081008
  Receipt Date: 20080930
  Transmission Date: 20090506
  Serious: Yes (Hospitalization)
  Sender: FDA-Public Use
  Company Number: PHHO2008US11747

PATIENT
  Sex: Male

DRUGS (13)
  1. SIMULECT [Suspect]
     Indication: LIVER TRANSPLANT
     Dosage: UNK
     Route: 042
     Dates: start: 20080406, end: 20080410
  2. CELLCEPT [Suspect]
     Indication: LIVER TRANSPLANT
     Dosage: 1500 MG, DAILY
     Route: 048
     Dates: start: 20080406
  3. PREDNISONE [Concomitant]
  4. PROCRIT [Concomitant]
  5. PANTOPRAZOLE SODIUM [Concomitant]
  6. ASPIRIN [Concomitant]
  7. MAGNESIUM OXIDE [Concomitant]
  8. IRON SULFATETHIAMIN COMPOUND TAB [Concomitant]
  9. MULTI-VITAMINS [Concomitant]
  10. SEPTRA [Concomitant]
  11. NORCO [Concomitant]
  12. DILAUDID [Concomitant]
  13. VALCYTE [Concomitant]

REACTIONS (7)
  - BILE DUCT STENOSIS [None]
  - BILE DUCT STENT INSERTION [None]
  - JAUNDICE [None]
  - LYMPHOPENIA [None]
  - NEUTROPENIA [None]
  - THROMBOCYTOPENIA [None]
  - URTICARIA [None]
